FAERS Safety Report 4873869-4 (Version None)
Quarter: 2006Q1

REPORT INFORMATION
  Report Type: 
  Country: None (occurrence: None)
  Receive Date: 20060103
  Receipt Date: 20060103
  Transmission Date: 20060701
  Serious: Yes (Life-Threatening, Hospitalization)
  Sender: FDA-Public Use
  Company Number: None

PATIENT
  Age: 44 Year
  Sex: Female
  Weight: 67.1324 kg

DRUGS (1)
  1. QUININE SULFATE [Suspect]
     Indication: RESTLESS LEGS SYNDROME
     Dosage: 1 TABLET PER DAY PO
     Route: 048
     Dates: start: 20040922, end: 20050606

REACTIONS (4)
  - CONTUSION [None]
  - IDIOPATHIC THROMBOCYTOPENIC PURPURA [None]
  - INFLUENZA LIKE ILLNESS [None]
  - LIMB INJURY [None]
